FAERS Safety Report 12418084 (Version 2)
Quarter: 2016Q3

REPORT INFORMATION
  Report Type: Spontaneous
  Country: IT (occurrence: IT)
  Receive Date: 20160531
  Receipt Date: 20160712
  Transmission Date: 20161109
  Serious: Yes (Hospitalization, Other)
  Sender: FDA-Public Use
  Company Number: IT-BRISTOL-MYERS SQUIBB COMPANY-BMS-2016-039487

PATIENT
  Age: 81 Year
  Sex: Male

DRUGS (7)
  1. NITROGLYCERIN. [Concomitant]
     Active Substance: NITROGLYCERIN
     Indication: PRODUCT USED FOR UNKNOWN INDICATION
     Dosage: 1 UNIT, UNK
     Route: 062
  2. FELODIPINE. [Concomitant]
     Active Substance: FELODIPINE
     Indication: PRODUCT USED FOR UNKNOWN INDICATION
     Route: 048
  3. FUROSEMIDE. [Concomitant]
     Active Substance: FUROSEMIDE
     Indication: PRODUCT USED FOR UNKNOWN INDICATION
     Dosage: 25 MG, UNK
     Route: 048
  4. LANSOPRAZOLE. [Concomitant]
     Active Substance: LANSOPRAZOLE
     Indication: PRODUCT USED FOR UNKNOWN INDICATION
     Route: 048
  5. COUMADIN [Suspect]
     Active Substance: WARFARIN SODIUM
     Indication: ATRIAL FIBRILLATION
     Dosage: 1 U, PRN
     Route: 065
     Dates: start: 20160101, end: 20160512
  6. TACHIDOL [Suspect]
     Active Substance: ACETAMINOPHEN\CODEINE PHOSPHATE
     Indication: PRODUCT USED FOR UNKNOWN INDICATION
     Dosage: 3 U, QD
     Route: 048
     Dates: start: 20160212, end: 20160512
  7. LANOXIN [Suspect]
     Active Substance: DIGOXIN
     Indication: PRODUCT USED FOR UNKNOWN INDICATION
     Dosage: 1 U, QD
     Route: 048
     Dates: start: 20160101, end: 20160512

REACTIONS (6)
  - Accidental overdose [Recovering/Resolving]
  - Psychomotor skills impaired [Recovering/Resolving]
  - Asthenia [Recovering/Resolving]
  - Vertigo [Recovering/Resolving]
  - Decreased appetite [Recovering/Resolving]
  - Dysstasia [Recovering/Resolving]

NARRATIVE: CASE EVENT DATE: 20160412
